FAERS Safety Report 4286810-2 (Version None)
Quarter: 2004Q1

REPORT INFORMATION
  Report Type: 
  Country: None (occurrence: None)
  Receive Date: 20040206
  Receipt Date: 20040119
  Transmission Date: 20041129
  Serious: Yes (Hospitalization)
  Sender: FDA-Public Use
  Company Number: FR-ROCHE-356309

PATIENT
  Age: 74 Year
  Sex: Female

DRUGS (10)
  1. VALIUM [Suspect]
     Indication: DRUG USE FOR UNKNOWN INDICATION
     Route: 048
     Dates: start: 20031113, end: 20031126
  2. LEXOMIL [Suspect]
     Indication: DRUG USE FOR UNKNOWN INDICATION
     Dosage: TAKEN IN THE EVENING.
     Route: 048
     Dates: start: 20031113, end: 20031210
  3. NOROXIN [Suspect]
     Indication: DRUG USE FOR UNKNOWN INDICATION
     Dosage: ONE DOSE TAKEN IN THE MORNING AND ONE IN THE EVENING.
     Route: 048
     Dates: start: 20031119, end: 20031126
  4. HYPERIUM [Suspect]
     Indication: DRUG USE FOR UNKNOWN INDICATION
     Dosage: TAKEN IN THE MORNING.
     Route: 048
     Dates: start: 20031113, end: 20031210
  5. DEROXAT [Suspect]
     Indication: DRUG USE FOR UNKNOWN INDICATION
     Dosage: TAKEN IN THE EVENING.
     Route: 048
     Dates: start: 20031113, end: 20031128
  6. FORLAX [Suspect]
     Indication: DRUG USE FOR UNKNOWN INDICATION
     Route: 048
     Dates: start: 20031114
  7. FRAGMIN [Suspect]
     Indication: DRUG USE FOR UNKNOWN INDICATION
     Route: 058
     Dates: start: 20031113
  8. MEPRONIZINE [Suspect]
     Indication: DRUG USE FOR UNKNOWN INDICATION
     Route: 065
  9. DEBRIDAT [Suspect]
     Indication: DRUG USE FOR UNKNOWN INDICATION
     Route: 065
  10. EDUCTYL [Suspect]
     Indication: DRUG USE FOR UNKNOWN INDICATION
     Route: 054
     Dates: start: 20031114

REACTIONS (4)
  - CUTANEOUS VASCULITIS [None]
  - DERMATITIS BULLOUS [None]
  - PEMPHIGOID [None]
  - PRURITUS [None]
